FAERS Safety Report 8793787 (Version 2)
Quarter: 2013Q4

REPORT INFORMATION
  Report Type: Spontaneous
  Country: US (occurrence: US)
  Receive Date: 20120918
  Receipt Date: 20131101
  Transmission Date: 20140711
  Serious: No
  Sender: FDA-Public Use
  Company Number: US-009507513-1209USA004616

PATIENT
  Sex: Male

DRUGS (4)
  1. PEG-INTRON [Suspect]
     Indication: HEPATITIS C
     Dosage: UNK
     Dates: start: 20020301, end: 20021101
  2. PEG-INTRON [Suspect]
     Dosage: UNK
     Dates: start: 20120907
  3. REBETOL [Suspect]
     Indication: HEPATITIS C
     Dosage: UNK
     Dates: start: 20020301, end: 20021101
  4. REBETOL [Suspect]
     Dosage: UNK
     Dates: start: 20120907

REACTIONS (1)
  - Drug ineffective [Unknown]
